FAERS Safety Report 22246987 (Version 1)
Quarter: 2023Q2

REPORT INFORMATION
  Report Type: Spontaneous
  Country: ES (occurrence: ES)
  Receive Date: 20230424
  Receipt Date: 20230424
  Transmission Date: 20230721
  Serious: Yes (Other)
  Sender: FDA-Public Use
  Company Number: None

PATIENT
  Age: 63 Year
  Sex: Male

DRUGS (7)
  1. LEVOFLOXACIN [Suspect]
     Active Substance: LEVOFLOXACIN
     Indication: Respiratory tract infection
     Dosage: LEVOFLOXACINO (2791A)
     Route: 065
     Dates: start: 20230218, end: 20230218
  2. CALCIFEDIOL [Concomitant]
     Active Substance: CALCIFEDIOL
     Indication: Product used for unknown indication
     Dosage: 10 DRINKABLE AMPOULES OF 1.5 ML
     Route: 065
     Dates: start: 20211102
  3. OMEPRAZOLE [Concomitant]
     Active Substance: OMEPRAZOLE
     Indication: Product used for unknown indication
     Dosage: OMEPRAZOLE CINFAMED 20 MG GASTRORESISTANT HARD CAPSULES EFG, 28 CAPSULES
     Dates: start: 20220513
  4. PALEXIA [Concomitant]
     Active Substance: TAPENTADOL HYDROCHLORIDE
     Indication: Product used for unknown indication
     Dosage: 60 TABLETS
     Dates: start: 20220513
  5. ASPIRIN [Concomitant]
     Active Substance: ASPIRIN
     Indication: Product used for unknown indication
     Dosage: ADIRO 100 MG GASTRORESISTANT TABLETS EFG, 30 TABLETS (PVC- ALUMINUM)
     Dates: start: 20220401
  6. PREGABALINA NORMON [Concomitant]
     Indication: Product used for unknown indication
     Dosage: PREGABALIN NORMON 100 MG HARD CAPSULES EFG, 84 CAPSULES (ALUMINUM BLISTER/PVC-PVDC 60)
     Dates: start: 20220104
  7. ATORVASTATIN CALCIUM [Concomitant]
     Active Substance: ATORVASTATIN CALCIUM
     Indication: Product used for unknown indication
     Dosage: ATORVASTATINA CINFA 40 MG FILM-COATED TABLETS EFG, 28 TABLETS
     Dates: start: 20220401

REACTIONS (3)
  - Pruritus [Recovered/Resolved]
  - Hypotension [Recovered/Resolved]
  - PO2 decreased [Recovered/Resolved]

NARRATIVE: CASE EVENT DATE: 20230218
